FAERS Safety Report 7572227-1 (Version None)
Quarter: 2011Q2

REPORT INFORMATION
  Report Type: 
  Country: None (occurrence: None)
  Receive Date: 20110624
  Receipt Date: 20110613
  Transmission Date: 20111010
  Serious: Yes (Hospitalization, Other)
  Sender: FDA-Public Use
  Company Number: PHHY2011BR22475

PATIENT
  Sex: Male

DRUGS (5)
  1. SPIRONOLACTONE [Concomitant]
     Dosage: 25 MG, UNK
  2. ATENOLOL [Concomitant]
     Dosage: 100 MG, UNK
  3. DAFLON (DIOSMIN) [Concomitant]
  4. ANTISTAX [Concomitant]
  5. EXFORGE [Suspect]
     Dosage: 320/10 MG

REACTIONS (6)
  - ANGIOPATHY [None]
  - ROAD TRAFFIC ACCIDENT [None]
  - VEIN DISORDER [None]
  - OEDEMA PERIPHERAL [None]
  - HYPOAESTHESIA [None]
  - POOR PERIPHERAL CIRCULATION [None]
